FAERS Safety Report 24826887 (Version 1)
Quarter: 2025Q1

REPORT INFORMATION
  Report Type: Spontaneous
  Country: US (occurrence: US)
  Receive Date: 20250109
  Receipt Date: 20250109
  Transmission Date: 20250409
  Serious: No
  Sender: BRISTOL-MYERS SQUIBB COMPANY
  Company Number: US-BRISTOL-MYERS SQUIBB COMPANY-2025-003682

PATIENT

DRUGS (4)
  1. NULOJIX [Suspect]
     Active Substance: BELATACEPT
     Indication: Product used for unknown indication
  2. NULOJIX [Suspect]
     Active Substance: BELATACEPT
  3. NULOJIX [Suspect]
     Active Substance: BELATACEPT
  4. NULOJIX [Suspect]
     Active Substance: BELATACEPT

REACTIONS (1)
  - Product storage error [Unknown]
